FAERS Safety Report 5421469-X (Version None)
Quarter: 2007Q3

REPORT INFORMATION
  Report Type: 
  Country: None (occurrence: None)
  Receive Date: 20070725
  Receipt Date: 20060821
  Transmission Date: 20080115
  Serious: Yes (Hospitalization, Other)
  Sender: FDA-Public Use
  Company Number: USA-2006-0025035

PATIENT
  Age: 42 Year
  Sex: Female

DRUGS (2)
  1. MORPHINE SULFATE [Suspect]
     Indication: DRUG ABUSER
     Dosage: SEE TEXT
  2. BENZODIAZEPINE (BENZODIAZEPINE) [Suspect]
     Indication: DRUG ABUSER
     Dosage: SEE TEXT

REACTIONS (3)
  - LOSS OF CONSCIOUSNESS [None]
  - OVERDOSE [None]
  - SUBSTANCE ABUSE [None]
